FAERS Safety Report 8509418-9 (Version None)
Quarter: 2012Q3

REPORT INFORMATION
  Report Type: 
  Country: None (occurrence: None)
  Receive Date: 20120713
  Receipt Date: 20120706
  Transmission Date: 20120928
  Serious: Yes (Other)
  Sender: FDA-Public Use
  Company Number: FR-PFIZER INC-2012162290

PATIENT
  Sex: Male

DRUGS (1)
  1. ATGAM [Suspect]
     Dosage: UNK

REACTIONS (2)
  - CYTOLYTIC HEPATITIS [None]
  - CEREBRAL VENOUS THROMBOSIS [None]
